FAERS Safety Report 7390373-2 (Version None)
Quarter: 2011Q2

REPORT INFORMATION
  Report Type: 
  Country: None (occurrence: None)
  Receive Date: 20110401
  Receipt Date: 20110331
  Transmission Date: 20111010
  Serious: Yes (Death, Hospitalization, Other)
  Sender: FDA-Public Use
  Company Number: US-AMGEN-QUU442400

PATIENT
  Age: 48 Year
  Sex: Male

DRUGS (2)
  1. IMMUNOGLOBULINS [Concomitant]
     Dosage: UNK UNK, UNK
     Dates: start: 20040101
  2. NPLATE [Suspect]
     Indication: IDIOPATHIC THROMBOCYTOPENIC PURPURA
     Dosage: 90 A?G, QWK
     Route: 058
     Dates: start: 20100426, end: 20101005

REACTIONS (4)
  - ACUTE MYELOID LEUKAEMIA [None]
  - FUNGAL INFECTION [None]
  - DEATH [None]
  - MYELODYSPLASTIC SYNDROME [None]
